FAERS Safety Report 4510491-3 (Version None)
Quarter: 2004Q4

REPORT INFORMATION
  Report Type: 
  Country: None (occurrence: None)
  Receive Date: 20041119
  Receipt Date: 20041102
  Transmission Date: 20050328
  Serious: Yes (Other)
  Sender: FDA-Public Use
  Company Number: DE_041114605

PATIENT
  Age: 81 Year
  Sex: Female
  Weight: 75 kg

DRUGS (7)
  1. YENTREVE    (DULOXETINE HYDROCHLORIDE) [Suspect]
     Indication: URINARY INCONTINENCE
     Dosage: 40 MG DAY
     Dates: start: 20041005, end: 20041006
  2. AQUAPHOR                      (XIPAMIDE) [Concomitant]
  3. TOREM   (TORASEMIDE SODIUM) [Concomitant]
  4. ENALAPRIL MALEATE [Concomitant]
  5. GINGIUM    (GINKGO BILOBA EXTRACT) [Concomitant]
  6. ACTRAPHANE HM 50/50 (INSULIN) [Concomitant]
  7. VITAMIN B12 FOR INJECTION (CYANOCOBALAMIN) [Concomitant]

REACTIONS (5)
  - FALL [None]
  - INJURY [None]
  - NAUSEA [None]
  - UPPER LIMB FRACTURE [None]
  - VERTIGO [None]
